FAERS Safety Report 8766918 (Version 2)
Quarter: 2012Q4

REPORT INFORMATION
  Report Type: 
  Country: US (occurrence: US)
  Receive Date: 20120903
  Receipt Date: 20120914
  Transmission Date: 20130627
  Serious: Yes (Other)
  Sender: FDA-Public Use
  Company Number: US-PFIZER INC-2012208772

PATIENT
  Sex: Female

DRUGS (2)
  1. LEVOXYL [Suspect]
     Dosage: 112 ug, 1x/day
     Route: 048
     Dates: start: 2003
  2. CALCIUM [Concomitant]
     Dosage: UNK

REACTIONS (1)
  - Corneal dystrophy [Unknown]
